FAERS Safety Report 4503129-2 (Version None)
Quarter: 2004Q4

REPORT INFORMATION
  Report Type: 
  Country: None (occurrence: None)
  Receive Date: 20041117
  Receipt Date: 20041116
  Transmission Date: 20050328
  Serious: Yes (Other)
  Sender: FDA-Public Use
  Company Number: GB-BRISTOL-MYERS SQUIBB COMPANY-12767125

PATIENT
  Age: 35 Year
  Sex: Female
  Weight: 78 kg

DRUGS (3)
  1. CYCLOPHOSPHAMIDE [Suspect]
     Indication: BREAST CANCER
     Dates: start: 20040827, end: 20040827
  2. PACLITAXEL [Suspect]
     Indication: BREAST CANCER
     Dates: start: 20041011, end: 20041011
  3. EPIRUBICIN [Suspect]
     Indication: BREAST CANCER
     Dates: start: 20040827, end: 20040827

REACTIONS (2)
  - CARDIOMYOPATHY [None]
  - DYSPNOEA [None]
